FAERS Safety Report 5156400-8 (Version None)
Quarter: 2006Q4

REPORT INFORMATION
  Report Type: 
  Country: None (occurrence: None)
  Receive Date: 20061122
  Receipt Date: 20061114
  Transmission Date: 20070319
  Serious: Yes (Other)
  Sender: FDA-Public Use
  Company Number: US-ABBOTT-06P-163-0350349-00

PATIENT
  Age: 20 Year
  Sex: Female

DRUGS (3)
  1. NORVIR [Suspect]
     Indication: SYSTEMIC ANTIVIRAL TREATMENT
     Route: 048
     Dates: start: 20060718, end: 20060727
  2. NORVIR [Suspect]
     Dates: start: 20060728, end: 20060805
  3. TRUVADA [Suspect]
     Indication: SYSTEMIC ANTIVIRAL TREATMENT
     Route: 048
     Dates: start: 20060718, end: 20060805

REACTIONS (1)
  - ABORTION SPONTANEOUS [None]
